FAERS Safety Report 7392084-6 (Version None)
Quarter: 2011Q2

REPORT INFORMATION
  Report Type: 
  Country: None (occurrence: None)
  Receive Date: 20110404
  Receipt Date: 20110324
  Transmission Date: 20111010
  Serious: Yes (Hospitalization)
  Sender: FDA-Public Use
  Company Number: A0772849A

PATIENT
  Age: 51 Year
  Sex: Male
  Weight: 93.2 kg

DRUGS (6)
  1. LANTUS [Concomitant]
  2. GLUCOTROL [Concomitant]
  3. SYNTHROID [Concomitant]
  4. AVANDIA [Suspect]
     Indication: DIABETES MELLITUS
     Dosage: 4MG TWICE PER DAY
     Route: 048
     Dates: start: 20060704, end: 20070910
  5. GLUCOPHAGE [Concomitant]
  6. METFORMIN HCL [Concomitant]

REACTIONS (3)
  - PAIN [None]
  - CORONARY ARTERY DISEASE [None]
  - ACUTE MYOCARDIAL INFARCTION [None]
